FAERS Safety Report 4964955-9 (Version None)
Quarter: 2006Q2

REPORT INFORMATION
  Report Type: 
  Country: None (occurrence: None)
  Receive Date: 20060403
  Receipt Date: 20060327
  Transmission Date: 20061013
  Serious: Yes (Hospitalization)
  Sender: FDA-Public Use
  Company Number: 2006-03-1764

PATIENT
  Age: 73 Year
  Sex: Male

DRUGS (6)
  1. CELESTODERM-V CREAM [Suspect]
     Indication: PRURITUS
     Dosage: 0.05% QD TOP-DERM
     Route: 061
     Dates: start: 20060118, end: 20060215
  2. OMEPRAZOLE [Concomitant]
  3. SINTROM [Concomitant]
  4. SIMVASTATIN [Concomitant]
  5. ALLOPURINOL [Concomitant]
  6. CEFAZOLIN [Concomitant]

REACTIONS (1)
  - HYPONATRAEMIA [None]
